FAERS Safety Report 7760407-1 (Version None)
Quarter: 2011Q3

REPORT INFORMATION
  Report Type: 
  Country: None (occurrence: None)
  Receive Date: 20110919
  Receipt Date: 20110915
  Transmission Date: 20111222
  Serious: Yes (Other)
  Sender: FDA-Public Use
  Company Number: PHHY2011ZA82483

PATIENT
  Sex: Female

DRUGS (3)
  1. ZOLEDRONOC ACID [Suspect]
     Dosage: 5 MG/100 ML SOLUTION FOR INFUSION
     Route: 042
     Dates: start: 20100101
  2. REVELLEX [Concomitant]
     Dosage: UNK UKN, UNK
     Route: 042
     Dates: start: 20110909
  3. ANTIBIOTICS [Concomitant]

REACTIONS (2)
  - MALAISE [None]
  - BRONCHITIS [None]
